FAERS Safety Report 5795241-5 (Version None)
Quarter: 2008Q2

REPORT INFORMATION
  Report Type: 
  Country: None (occurrence: None)
  Receive Date: 20080630
  Receipt Date: 20080620
  Transmission Date: 20081010
  Serious: Yes (Hospitalization)
  Sender: FDA-Public Use
  Company Number: CZ-AMGEN-UK288883

PATIENT
  Sex: Female
  Weight: 64 kg

DRUGS (5)
  1. NEUPOGEN [Suspect]
     Indication: CHEMOTHERAPY
     Route: 058
     Dates: start: 20080417, end: 20080419
  2. DOCETAXEL [Suspect]
     Route: 042
     Dates: start: 20080320
  3. ACETAMINOPHEN [Suspect]
     Dates: start: 20080419
  4. IBUROFEN [Suspect]
     Dates: start: 20080419
  5. SUNITINIB MALATE [Concomitant]
     Route: 048
     Dates: start: 20080321

REACTIONS (7)
  - ARTHRALGIA [None]
  - ASTHENIA [None]
  - COUGH [None]
  - DEHYDRATION [None]
  - MYALGIA [None]
  - NAUSEA [None]
  - PYREXIA [None]
